FAERS Safety Report 9091562 (Version 1)
Quarter: 2013Q1

REPORT INFORMATION
  Report Type: Report from Study
  Country: US (occurrence: US)
  Receive Date: 20130201
  Receipt Date: 20130201
  Transmission Date: 20140127
  Serious: No
  Sender: FDA-Public Use
  Company Number: US-ABBOTT-12P-163-1025617-00

PATIENT
  Sex: Female

DRUGS (4)
  1. HUMIRA [Suspect]
     Indication: ANKYLOSING SPONDYLITIS
     Dates: start: 2009, end: 20111205
  2. HUMIRA [Suspect]
     Dates: start: 201212
  3. PRENATAL VITAMINS [Concomitant]
     Indication: PREGNANCY
     Dates: start: 201112
  4. ADVIL [Concomitant]
     Indication: ANKYLOSING SPONDYLITIS

REACTIONS (2)
  - Ankylosing spondylitis [Recovering/Resolving]
  - Back pain [Recovering/Resolving]
